FAERS Safety Report 14595738 (Version 2)
Quarter: 2018Q1

REPORT INFORMATION
  Report Type: Report from Study
  Country: US (occurrence: US)
  Receive Date: 20180303
  Receipt Date: 20180330
  Transmission Date: 20180509
  Serious: Yes (Other)
  Sender: FDA-Public Use
  Company Number: PHEH2018US007808

PATIENT
  Age: 40 Year
  Sex: Female
  Weight: 63.49 kg

DRUGS (1)
  1. GILENYA [Suspect]
     Active Substance: FINGOLIMOD HYDROCHLORIDE
     Indication: MULTIPLE SCLEROSIS
     Dosage: 0.5 MG, QD
     Route: 048
     Dates: start: 2013, end: 20180219

REACTIONS (10)
  - Visual impairment [Recovering/Resolving]
  - Multiple sclerosis relapse [Unknown]
  - Headache [Unknown]
  - Dysarthria [Recovering/Resolving]
  - Asthenia [Unknown]
  - Fall [Recovering/Resolving]
  - Aphasia [Unknown]
  - Posterior reversible encephalopathy syndrome [Unknown]
  - Cognitive disorder [Unknown]
  - Multiple sclerosis [Unknown]

NARRATIVE: CASE EVENT DATE: 20180217
